FAERS Safety Report 16465158 (Version 1)
Quarter: 2019Q2

REPORT INFORMATION
  Report Type: Spontaneous
  Country: US (occurrence: US)
  Receive Date: 20190621
  Receipt Date: 20190621
  Transmission Date: 20190711
  Serious: No
  Sender: FDA-Public Use
  Company Number: US-BAUSCH-BL-2019-017847

PATIENT
  Age: 40 Year
  Sex: Female

DRUGS (1)
  1. PLENVU [Suspect]
     Active Substance: ASCORBIC ACID\POLYETHYLENE GLYCOL 3350\POTASSIUM CHLORIDE\SODIUM ASCORBATE\SODIUM CHLORIDE\SODIUM SULFATE
     Indication: BOWEL PREPARATION
     Dosage: DOSE 1 IN THE EVENING, DOSE 2 THE NEXT MORNING PRIOR TO THE PROCEDURE, TWO DAY DOSING REGIMEN
     Route: 048
     Dates: start: 201906, end: 201906

REACTIONS (1)
  - Therapeutic product effect incomplete [Unknown]

NARRATIVE: CASE EVENT DATE: 201906
